FAERS Safety Report 23375307 (Version 1)
Quarter: 2024Q1

REPORT INFORMATION
  Report Type: Other
  Country: None (occurrence: US)
  Receive Date: 20240106
  Receipt Date: 20240106
  Transmission Date: 20240410
  Serious: Yes (Other)
  Sender: FDA-Public Use
  Company Number: US-SIGA Technologies, Inc.-2150258

PATIENT
  Age: 43 Year
  Sex: Male

DRUGS (5)
  1. TPOXX [Suspect]
     Active Substance: TECOVIRIMAT
     Indication: Monkeypox
     Route: 048
  2. TPOXX [Suspect]
     Active Substance: TECOVIRIMAT
     Route: 042
  3. vaccinia immune globulin (VIGIV) [Concomitant]
     Route: 042
  4. BRINCIDOFOVIR [Concomitant]
     Active Substance: BRINCIDOFOVIR
     Route: 048
  5. antiretroviral therapy (ART) [Concomitant]

REACTIONS (1)
  - Drug resistance [None]
